FAERS Safety Report 17262657 (Version 1)
Quarter: 2020Q1

REPORT INFORMATION
  Report Type: Spontaneous
  Country: IT (occurrence: IT)
  Receive Date: 20200113
  Receipt Date: 20200113
  Transmission Date: 20200409
  Serious: Yes (Hospitalization, Other)
  Sender: FDA-Public Use
  Company Number: NVSC2019IT013024

PATIENT
  Age: 53 Year
  Sex: Female

DRUGS (3)
  1. MYCOPHENOLIC ACID. [Concomitant]
     Active Substance: MYCOPHENOLIC ACID
     Indication: IMMUNOSUPPRESSANT DRUG THERAPY
     Route: 065
     Dates: start: 2017
  2. TACROLIMUS. [Suspect]
     Active Substance: TACROLIMUS
     Indication: IMMUNOSUPPRESSANT DRUG THERAPY
     Dosage: UNK
     Route: 065
     Dates: start: 2017
  3. LERCANIDIPINE [Suspect]
     Active Substance: LERCANIDIPINE
     Indication: BLOOD PRESSURE INADEQUATELY CONTROLLED
     Dosage: 20 MG, QD
     Route: 065

REACTIONS (5)
  - Urine output decreased [Unknown]
  - Weight increased [Unknown]
  - Toxicity to various agents [Recovering/Resolving]
  - Ascites [Unknown]
  - Renal impairment [Recovering/Resolving]

NARRATIVE: CASE EVENT DATE: 2017
